FAERS Safety Report 4733368-7 (Version None)
Quarter: 2005Q3

REPORT INFORMATION
  Report Type: 
  Country: None (occurrence: None)
  Receive Date: 20050801
  Receipt Date: 20050801
  Transmission Date: 20060218
  Serious: Yes (Hospitalization)
  Sender: FDA-Public Use
  Company Number: None

PATIENT
  Age: 73 Year
  Sex: Male

DRUGS (4)
  1. CLONIDINE [Suspect]
     Indication: HYPERTENSION
     Dosage: 0.1 MG BID
     Dates: start: 20040201
  2. LORTAB [Concomitant]
  3. PROCHLORPERAZINE [Concomitant]
  4. FLOXAX [Concomitant]

REACTIONS (1)
  - SYNCOPE [None]
